FAERS Safety Report 9984132 (Version 1)
Quarter: 2014Q1

REPORT INFORMATION
  Report Type: Report from Study
  Country: US (occurrence: US)
  Receive Date: 20140307
  Receipt Date: 20140307
  Transmission Date: 20141002
  Serious: No
  Sender: FDA-Public Use
  Company Number: US-ABBVIE-13P-163-1184127-00

PATIENT
  Age: 42 Year
  Sex: Female
  Weight: 83.99 kg

DRUGS (6)
  1. HUMIRA [Suspect]
     Indication: RHEUMATOID ARTHRITIS
     Dates: start: 20131217
  2. GABAPENTIN [Concomitant]
     Indication: HEADACHE
  3. GABAPENTIN [Concomitant]
     Indication: INSOMNIA
  4. FOLIC ACID [Concomitant]
     Indication: VITAMIN SUPPLEMENTATION
  5. LEFLUNOMIDE [Concomitant]
     Indication: SWELLING
  6. NEXIUM [Concomitant]
     Indication: GASTRITIS

REACTIONS (1)
  - Local swelling [Not Recovered/Not Resolved]
